FAERS Safety Report 7470985 (Version 8)
Quarter: 2014Q4

REPORT INFORMATION
  Report Type: Spontaneous
  Country: US (occurrence: US)
  Receive Date: 20100713
  Receipt Date: 20141212
  Transmission Date: 20150529
  Serious: Yes (Hospitalization, Other)
  Sender: FDA-Public Use
  Company Number: US-AMGEN-QUU422515

PATIENT
  Age: 21 Year
  Sex: Male
  Weight: 60.95 kg

DRUGS (17)
  1. METOPROLOL TARTRATE. [Concomitant]
     Active Substance: METOPROLOL TARTRATE
     Dosage: 25 MG, BID
     Route: 048
  2. NIFEDIPINE. [Concomitant]
     Active Substance: NIFEDIPINE
     Dosage: 60 MG, BID
     Route: 048
  3. OXYCODONE [Concomitant]
     Active Substance: OXYCODONE
     Dosage: UNK UNK, PRN
     Route: 048
  4. CLONIDINE. [Concomitant]
     Active Substance: CLONIDINE
     Dosage: .1 MG, PRN
     Route: 048
  5. CLONAZEPAM. [Concomitant]
     Active Substance: CLONAZEPAM
     Dosage: 0.5 MG, QD
     Route: 048
  6. CALCITRIOL. [Concomitant]
     Active Substance: CALCITRIOL
     Dosage: .5 MUG, 3 TIMES/WK
     Route: 048
  7. LOSARTAN POTASSIUM. [Concomitant]
     Active Substance: LOSARTAN POTASSIUM
     Dosage: UNK
  8. DIPHENHYDRAMINE HYDROCHLORIDE. [Concomitant]
     Active Substance: DIPHENHYDRAMINE HYDROCHLORIDE
     Dosage: UNK UNK, PRN
  9. ARANESP [Suspect]
     Active Substance: DARBEPOETIN ALFA
     Indication: CHRONIC KIDNEY DISEASE
     Dosage: 300 MUG, QWK
     Route: 042
     Dates: start: 2010
  10. GABAPENTIN. [Concomitant]
     Active Substance: GABAPENTIN
     Dosage: 500 MG, TID
     Route: 048
  11. HEPARIN [Concomitant]
     Active Substance: HEPARIN SODIUM
     Dosage: 3500 IU/KG, UNK
     Route: 042
  12. PANTOPRAZOLE SODIUM [Concomitant]
     Active Substance: PANTOPRAZOLE SODIUM
     Dosage: 40 MG, QD
     Route: 048
  13. MINOXIDIL. [Concomitant]
     Active Substance: MINOXIDIL
     Dosage: UNK
  14. ONDANSETRON HYDROCHLORIDE. [Concomitant]
     Active Substance: ONDANSETRON HYDROCHLORIDE
     Dosage: 8 MG, Q6H
     Route: 048
  15. LIDOCAINE. [Concomitant]
     Active Substance: LIDOCAINE
     Dosage: 5 %, PRN
  16. EPOGEN [Suspect]
     Active Substance: ERYTHROPOIETIN
     Indication: CHRONIC KIDNEY DISEASE
     Dosage: UNK UNK, UNK
     Route: 058
     Dates: start: 2007, end: 2010
  17. OSELTAMIVIR [Concomitant]
     Active Substance: OSELTAMIVIR
     Dosage: UNK

REACTIONS (8)
  - Bone marrow myelogram abnormal [Not Recovered/Not Resolved]
  - Glomerulonephritis [Unknown]
  - Therapeutic response decreased [Unknown]
  - Anaemia [Unknown]
  - Haemoglobin abnormal [Unknown]
  - Focal segmental glomerulosclerosis [Unknown]
  - Aplasia pure red cell [Not Recovered/Not Resolved]
  - Anti-erythropoietin antibody positive [Unknown]

NARRATIVE: CASE EVENT DATE: 2010
